FAERS Safety Report 5812189-8 (Version None)
Quarter: 2008Q3

REPORT INFORMATION
  Report Type: 
  Country: None (occurrence: None)
  Receive Date: 20080716
  Receipt Date: 20080709
  Transmission Date: 20090109
  Serious: Yes (Hospitalization, Other)
  Sender: FDA-Public Use
  Company Number: US-AMGEN-QUU293572

PATIENT
  Sex: Female

DRUGS (2)
  1. ENBREL [Suspect]
     Indication: RHEUMATOID ARTHRITIS
     Route: 058
  2. METHOTREXATE [Concomitant]
     Route: 048

REACTIONS (4)
  - LOWER RESPIRATORY TRACT INFECTION BACTERIAL [None]
  - LOWER RESPIRATORY TRACT INFECTION VIRAL [None]
  - PLEURAL EFFUSION [None]
  - RHEUMATOID LUNG [None]
